FAERS Safety Report 7774488-2 (Version None)
Quarter: 2011Q3

REPORT INFORMATION
  Report Type: 
  Country: None (occurrence: None)
  Receive Date: 20110923
  Receipt Date: 20110913
  Transmission Date: 20111222
  Serious: Yes (Other)
  Sender: FDA-Public Use
  Company Number: CA-JNJFOC-20110507962

PATIENT
  Sex: Male
  Weight: 90.72 kg

DRUGS (5)
  1. VITAMIN D [Concomitant]
     Dosage: 1 EVERY DAY
     Route: 065
  2. VITAMIN TAB [Concomitant]
     Dosage: 1 EVERY DAY
     Route: 065
  3. CALCIUM CARBONATE [Concomitant]
     Dosage: 1 EVERY DAY
     Route: 065
  4. AZATHIOPRINE [Concomitant]
     Route: 048
  5. REMICADE [Suspect]
     Indication: CROHN'S DISEASE
     Route: 042
     Dates: start: 20100101

REACTIONS (1)
  - LIGAMENT SPRAIN [None]
